FAERS Safety Report 7406936-1 (Version None)
Quarter: 2011Q2

REPORT INFORMATION
  Report Type: 
  Country: None (occurrence: None)
  Receive Date: 20110406
  Receipt Date: 20110406
  Transmission Date: 20111010
  Serious: Yes (Disabling)
  Sender: FDA-Public Use
  Company Number: None

PATIENT
  Age: 55 Year
  Sex: Female
  Weight: 72.5755 kg

DRUGS (2)
  1. REGLAN [Suspect]
     Indication: ABDOMINAL DISCOMFORT
     Dosage: 10MG 4 DAILY
  2. LOVASTATIN [Suspect]
     Indication: BLOOD CHOLESTEROL INCREASED
     Dosage: 40MG 1 DAILY

REACTIONS (6)
  - MYOPATHY [None]
  - ARTHRALGIA [None]
  - PLANTAR FASCIITIS [None]
  - PAIN IN EXTREMITY [None]
  - SUICIDAL IDEATION [None]
  - AUTONOMIC NEUROPATHY [None]
